FAERS Safety Report 11091524 (Version 1)
Quarter: 2015Q2

REPORT INFORMATION
  Report Type: Spontaneous
  Country: US (occurrence: US)
  Receive Date: 20150505
  Receipt Date: 20150505
  Transmission Date: 20150821
  Serious: No
  Sender: FDA-Public Use
  Company Number: US-PFIZER INC-2015152004

PATIENT
  Age: 53 Year
  Sex: Female
  Weight: 77 kg

DRUGS (5)
  1. LISINOPRIL HCTZ [Concomitant]
     Active Substance: HYDROCHLOROTHIAZIDE\LISINOPRIL
     Indication: HYPERTENSION
     Dosage: 10/12.5 TABLET
     Route: 048
  2. XANAX [Concomitant]
     Active Substance: ALPRAZOLAM
     Indication: ANXIETY
     Dosage: 0.5-1.5MG, DAILY
     Route: 048
     Dates: start: 2012
  3. ZOLOFT [Concomitant]
     Active Substance: SERTRALINE HYDROCHLORIDE
     Indication: DEPRESSION
     Dosage: 200 MG, DAILY
     Route: 048
     Dates: start: 2007
  4. PROTONIX [Concomitant]
     Active Substance: PANTOPRAZOLE SODIUM
     Indication: EPIGASTRIC DISCOMFORT
     Dosage: 40 MG, DAILY
     Route: 048
     Dates: start: 2012
  5. XELJANZ [Suspect]
     Active Substance: TOFACITINIB CITRATE
     Indication: RHEUMATOID ARTHRITIS
     Dosage: 5 MG, 2X/DAY
     Route: 048
     Dates: start: 2015, end: 20150428

REACTIONS (11)
  - Fall [Unknown]
  - Nervousness [Recovering/Resolving]
  - Confusional state [Not Recovered/Not Resolved]
  - Blood cholesterol increased [Unknown]
  - Herpes virus infection [Unknown]
  - Epigastric discomfort [Not Recovered/Not Resolved]
  - Anxiety [Recovering/Resolving]
  - Productive cough [Not Recovered/Not Resolved]
  - Limb injury [Unknown]
  - Nasopharyngitis [Not Recovered/Not Resolved]
  - Menopausal symptoms [Not Recovered/Not Resolved]

NARRATIVE: CASE EVENT DATE: 201503
